FAERS Safety Report 7017742 (Version 3)
Quarter: 2015Q1

REPORT INFORMATION
  Report Type: Report from Study
  Country: FR (occurrence: FR)
  Receive Date: 20090611
  Receipt Date: 20150227
  Transmission Date: 20150721
  Serious: Yes (Death, Hospitalization)
  Sender: FDA-Public Use
  Company Number: PHHO2008FR09610

PATIENT
  Age: 70 Year
  Sex: Male

DRUGS (1)
  1. EVEROLIMUS [Suspect]
     Active Substance: EVEROLIMUS
     Indication: NON-SMALL CELL LUNG CANCER
     Dosage: 2.5 MG, UNK
     Route: 048
     Dates: start: 20080602, end: 20080710

REACTIONS (14)
  - Chills [Fatal]
  - Dyspnoea [Fatal]
  - Hyperhidrosis [Fatal]
  - Vertigo [Fatal]
  - Weight decreased [Fatal]
  - Interstitial lung disease [Fatal]
  - Chest pain [Fatal]
  - Lung disorder [Fatal]
  - Pneumonia [Fatal]
  - Pulmonary embolism [Fatal]
  - Pyrexia [Fatal]
  - Rales [Fatal]
  - Platelet count abnormal [Not Recovered/Not Resolved]
  - Cough [Fatal]

NARRATIVE: CASE EVENT DATE: 20080711
